FAERS Safety Report 7011534-8 (Version None)
Quarter: 2010Q3

REPORT INFORMATION
  Report Type: 
  Country: None (occurrence: None)
  Receive Date: 20100923
  Receipt Date: 20090512
  Transmission Date: 20110219
  Serious: No
  Sender: FDA-Public Use
  Company Number: US-WYE-H08309709

PATIENT
  Sex: Female
  Weight: 89.89 kg

DRUGS (7)
  1. PREMARIN [Suspect]
     Indication: HORMONE REPLACEMENT THERAPY
     Route: 067
     Dates: start: 19820101
  2. PLENDIL [Concomitant]
  3. DECONGESTANT [Concomitant]
  4. HYDROCHLOROTHIAZIDE [Concomitant]
  5. LACTOBACILLUS ACIDOPHILUS [Concomitant]
  6. ESTRATEST [Concomitant]
  7. LANSOPRAZOLE [Concomitant]

REACTIONS (4)
  - APPLICATION SITE IRRITATION [None]
  - POLLAKIURIA [None]
  - VULVOVAGINAL BURNING SENSATION [None]
  - VULVOVAGINAL MYCOTIC INFECTION [None]
